FAERS Safety Report 9685257 (Version 1)
Quarter: 2013Q4

REPORT INFORMATION
  Report Type: Spontaneous
  Country: US (occurrence: US)
  Receive Date: 20131113
  Receipt Date: 20131113
  Transmission Date: 20140711
  Serious: Yes (Other)
  Sender: FDA-Public Use
  Company Number: US-SA-2013SA116230

PATIENT
  Age: 51 Year
  Sex: Male

DRUGS (1)
  1. AVAPRO [Suspect]
     Route: 065

REACTIONS (1)
  - Anaphylactic reaction [Recovered/Resolved]
